FAERS Safety Report 7487440-1 (Version None)
Quarter: 2011Q2

REPORT INFORMATION
  Report Type: 
  Country: None (occurrence: None)
  Receive Date: 20110518
  Receipt Date: 20110511
  Transmission Date: 20111010
  Serious: Yes (Death, Life-Threatening, Hospitalization, Other)
  Sender: FDA-Public Use
  Company Number: DE-JNJFOC-20110500848

PATIENT
  Age: 85 Year
  Sex: Female

DRUGS (20)
  1. ASPIRIN [Concomitant]
     Route: 048
     Dates: end: 20070925
  2. PREDNISOLONE [Concomitant]
     Route: 048
     Dates: end: 20070925
  3. RISPERDAL [Suspect]
     Route: 048
     Dates: start: 20070911, end: 20070925
  4. FURORESE [Concomitant]
     Route: 048
     Dates: end: 20070925
  5. MELNEURIN [Interacting]
     Indication: PRODUCT USED FOR UNKNOWN INDICATION
     Route: 048
     Dates: end: 20070905
  6. DOMINAL [Suspect]
     Route: 048
     Dates: start: 20070806, end: 20070909
  7. COVERSUM [Concomitant]
     Route: 048
     Dates: end: 20070925
  8. THEOPHYLLINE [Concomitant]
     Route: 048
     Dates: end: 20070925
  9. ACETAMINOPHEN [Concomitant]
     Route: 048
     Dates: start: 20070925
  10. DOMINAL [Suspect]
     Indication: PRODUCT USED FOR UNKNOWN INDICATION
     Route: 048
     Dates: start: 20070910, end: 20070916
  11. DIGIMERCK [Concomitant]
     Route: 048
     Dates: end: 20070925
  12. ACC 200 [Concomitant]
     Route: 048
     Dates: end: 20070925
  13. DOMINAL [Suspect]
     Route: 048
     Dates: start: 20070917, end: 20070925
  14. CALCIUM CARBONATE [Concomitant]
     Route: 048
     Dates: end: 20070925
  15. BAMBEC [Concomitant]
     Route: 048
     Dates: end: 20070925
  16. EMBOLEX [Concomitant]
     Route: 058
     Dates: start: 20070926
  17. RISPERDAL [Suspect]
     Indication: PRODUCT USED FOR UNKNOWN INDICATION
     Route: 048
     Dates: end: 20070910
  18. MELNEURIN [Interacting]
     Route: 048
     Dates: start: 20070906, end: 20070925
  19. ACETAMINOPHEN [Concomitant]
     Route: 048
     Dates: start: 20070924
  20. CEFTRIAXONE [Concomitant]
     Route: 042

REACTIONS (2)
  - DRUG INTERACTION [None]
  - PNEUMONIA [None]
